FAERS Safety Report 10023196 (Version 1)
Quarter: 2014Q1

REPORT INFORMATION
  Report Type: Spontaneous
  Country: US (occurrence: US)
  Receive Date: 20140320
  Receipt Date: 20140320
  Transmission Date: 20141002
  Serious: Yes (Other)
  Sender: FDA-Public Use
  Company Number: US-BIOGENIDEC-2014BI026305

PATIENT
  Age: 55 Year
  Sex: Female

DRUGS (3)
  1. AVONEX [Suspect]
     Indication: MULTIPLE SCLEROSIS
     Route: 030
     Dates: start: 20000501, end: 20140101
  2. ASPIRIN [Concomitant]
     Route: 048
  3. NUVIGIL [Concomitant]
     Route: 048

REACTIONS (1)
  - Caesarean section [Unknown]
